FAERS Safety Report 25016565 (Version 4)
Quarter: 2025Q2

REPORT INFORMATION
  Report Type: Other
  Country: US (occurrence: US)
  Receive Date: 20250227
  Receipt Date: 20250425
  Transmission Date: 20250717
  Serious: Yes (Death, Hospitalization)
  Sender: TRAVERE THERAPEUTICS
  Company Number: US-TRAVERE-2025TVT00248

PATIENT
  Sex: Male

DRUGS (1)
  1. FILSPARI [Suspect]
     Active Substance: SPARSENTAN
     Indication: IgA nephropathy
     Route: 048
     Dates: start: 20241228, end: 20250102

REACTIONS (6)
  - Hepatic hydrothorax [Fatal]
  - Empyema [Fatal]
  - Renal disorder [Unknown]
  - Primary biliary cholangitis [Unknown]
  - Aspiration pleural cavity [Unknown]
  - Hypotension [Unknown]
